FAERS Safety Report 15791217 (Version 5)
Quarter: 2019Q1

REPORT INFORMATION
  Report Type: Spontaneous
  Country: IT (occurrence: IT)
  Receive Date: 20190104
  Receipt Date: 20190305
  Transmission Date: 20190417
  Serious: Yes (Other)
  Sender: FDA-Public Use
  Company Number: IT-SA-2018SA389467

PATIENT
  Age: 24 Year
  Sex: Female
  Weight: 55 kg

DRUGS (2)
  1. DUPIXENT [Suspect]
     Active Substance: DUPILUMAB
     Indication: DERMATITIS ATOPIC
     Dosage: UNK
     Route: 058
     Dates: start: 20181128, end: 20181212
  2. DUPIXENT [Suspect]
     Active Substance: DUPILUMAB
     Dosage: 300 MG, 1 CYCLICAL

REACTIONS (15)
  - Paraesthesia [Recovered/Resolved]
  - Oropharyngeal pain [Recovered/Resolved]
  - Pharyngotonsillitis [Recovered/Resolved]
  - Face oedema [Recovered/Resolved]
  - Dermatitis atopic [Recovered/Resolved]
  - Serum sickness [Recovered/Resolved]
  - Condition aggravated [Recovering/Resolving]
  - Malaise [Unknown]
  - Arthralgia [Recovering/Resolving]
  - Asthma [Unknown]
  - Erythema [Unknown]
  - Throat irritation [Recovering/Resolving]
  - Lymphadenopathy [Recovered/Resolved]
  - Skin tightness [Unknown]
  - Hyperpyrexia [Recovered/Resolved]

NARRATIVE: CASE EVENT DATE: 201812
